FAERS Safety Report 6528493-4 (Version None)
Quarter: 2010Q1

REPORT INFORMATION
  Report Type: 
  Country: None (occurrence: None)
  Receive Date: 20100106
  Receipt Date: 20091228
  Transmission Date: 20100710
  Serious: Yes (Life-Threatening, Hospitalization, Other)
  Sender: FDA-Public Use
  Company Number: DE-PFIZER INC-2009226723

PATIENT
  Age: 69 Year
  Sex: Female
  Weight: 65 kg

DRUGS (9)
  1. SILDENAFIL CITRATE [Suspect]
     Indication: PULMONARY ARTERIAL HYPERTENSION
     Dosage: 40 MG, 3X/DAY
     Route: 048
     Dates: start: 20090301, end: 20090701
  2. THIAMAZOLE [Suspect]
     Indication: GOITRE
     Dosage: ^CHANGING DOSE^, UNK
     Dates: start: 20090101
  3. MARCUMAR [Suspect]
     Dosage: DOSE ACCORDING TO INR, UNK
  4. THELIN [Concomitant]
     Indication: PULMONARY ARTERIAL HYPERTENSION
     Dosage: ^100^, UNIT NOT STATED, UNK
     Dates: start: 20090301
  5. PANTOPRAZOLE [Concomitant]
     Dosage: UNK
  6. TORSEMIDE [Concomitant]
     Dosage: 10 MG, UNK
  7. NEBIVOLOL [Concomitant]
     Dosage: UNK
     Dates: end: 20090301
  8. RAMIPRIL [Concomitant]
     Dosage: UNK
     Dates: end: 20090301
  9. SPIRONOLACTONE [Concomitant]
     Dosage: 50 MG, UNK

REACTIONS (4)
  - FATIGUE [None]
  - HAEMOLYTIC ANAEMIA [None]
  - INTERNATIONAL NORMALISED RATIO ABNORMAL [None]
  - IRON DEFICIENCY [None]
